FAERS Safety Report 6872015-5 (Version None)
Quarter: 2010Q3

REPORT INFORMATION
  Report Type: 
  Country: None (occurrence: None)
  Receive Date: 20100723
  Receipt Date: 20100716
  Transmission Date: 20110219
  Serious: Yes (Life-Threatening, Hospitalization)
  Sender: FDA-Public Use
  Company Number: IT-ABBOTT-10P-083-0657976-00

PATIENT
  Age: 75 Year
  Sex: Male

DRUGS (2)
  1. DEPAKENE [Suspect]
     Indication: CONVULSION
     Dosage: POWDER FOR SOLUTION; DAILY
     Route: 042
     Dates: start: 20100630, end: 20100701
  2. DEPAKENE [Suspect]
     Dosage: GASTRO-RESISTANT TABLET; DAILY
     Route: 048
     Dates: start: 20100702, end: 20100707

REACTIONS (2)
  - AGRANULOCYTOSIS [None]
  - GRANULOCYTOPENIA [None]
